FAERS Safety Report 24183756 (Version 1)
Quarter: 2024Q3

REPORT INFORMATION
  Report Type: Spontaneous
  Country: US (occurrence: None)
  Receive Date: 20240806
  Receipt Date: 20240806
  Transmission Date: 20241017
  Serious: Yes (Death)
  Sender: Public
  Company Number: None

PATIENT
  Age: 59 Year
  Sex: Male

DRUGS (4)
  1. TACROLIMUS [Suspect]
     Active Substance: TACROLIMUS
     Indication: Transplant
     Dosage: FREQUENCY : DAILY;?
     Route: 048
     Dates: start: 20120928, end: 20240704
  2. LINZESS [Concomitant]
     Active Substance: LINACLOTIDE
  3. SIROLIMUS [Concomitant]
     Active Substance: SIROLIMUS
  4. CAPSAICIN [Concomitant]

REACTIONS (1)
  - Transplant failure [None]

NARRATIVE: CASE EVENT DATE: 20240704
